FAERS Safety Report 8551629 (Version 3)
Quarter: 2013Q2

REPORT INFORMATION
  Report Type: Spontaneous
  Country: US (occurrence: US)
  Receive Date: 20120508
  Receipt Date: 20130506
  Transmission Date: 20140414
  Serious: Yes (Hospitalization)
  Sender: FDA-Public Use
  Company Number: US-BAYER-2012-043452

PATIENT
  Age: 30 Year
  Sex: Female
  Weight: 91.61 kg

DRUGS (12)
  1. GIANVI [Suspect]
     Dates: start: 201007, end: 201106
  2. YAZ [Suspect]
     Dates: start: 200704, end: 201007
  3. RESPIRATORY SYSTEM [Concomitant]
  4. CORTICOSTEROIDS [Concomitant]
  5. SINGULAIR [Concomitant]
  6. SYMBICORT [Concomitant]
  7. Z-PAK [Concomitant]
  8. PREDNISONE [Concomitant]
  9. BENICAR [Concomitant]
     Dosage: 20 MG, QD
  10. PRO-AIR [Concomitant]
  11. PREVACID [Concomitant]
     Dosage: 30 MG, QD
  12. DUONEB [Concomitant]

REACTIONS (2)
  - Pulmonary embolism [None]
  - Injury [None]
